FAERS Safety Report 6707112-8 (Version None)
Quarter: 2010Q2

REPORT INFORMATION
  Report Type: 
  Country: None (occurrence: None)
  Receive Date: 20100503
  Receipt Date: 20100421
  Transmission Date: 20101027
  Serious: Yes (Disabling, Other)
  Sender: FDA-Public Use
  Company Number: B0610652A

PATIENT
  Age: 54 Year
  Sex: Male

DRUGS (5)
  1. CLENIL MODULITE [Suspect]
     Indication: ASTHMA
     Dosage: 400MCG PER DAY
     Route: 055
  2. SYMBICORT [Concomitant]
  3. VENTOLIN [Concomitant]
  4. ANTIHISTAMINES [Concomitant]
  5. NICOTINE [Concomitant]

REACTIONS (1)
  - MULTIPLE SCLEROSIS [None]
